FAERS Safety Report 7682628-9 (Version None)
Quarter: 2011Q3

REPORT INFORMATION
  Report Type: 
  Country: None (occurrence: None)
  Receive Date: 20110815
  Receipt Date: 20110801
  Transmission Date: 20111222
  Serious: Yes (Hospitalization, Other)
  Sender: FDA-Public Use
  Company Number: PHHY2011US57025

PATIENT
  Age: 61 Year
  Sex: Female
  Weight: 97.506 kg

DRUGS (9)
  1. SANDOSTATIN LAR [Suspect]
     Indication: CARCINOID TUMOUR OF THE GASTROINTESTINAL TRACT
     Dosage: 30 MG, QMO
     Route: 042
  2. ASPIRIN [Concomitant]
     Dosage: 650 MG
  3. THYROID TAB [Concomitant]
  4. PRILOSEC [Concomitant]
     Dosage: 20 MG, PRN
  5. OXYCODONE HCL [Concomitant]
  6. SANDOSTATIN LAR [Suspect]
     Dosage: 20 MG, QMO
  7. LUNESTA [Concomitant]
     Dosage: 3 MG, PRN
  8. SANDOSTATIN LAR [Suspect]
     Dosage: 40 MG, QMO
  9. HYDROCHLOROTHIAZIDE [Concomitant]
     Dosage: 12.5 MG, QD

REACTIONS (20)
  - QUALITY OF LIFE DECREASED [None]
  - VOMITING [None]
  - ABDOMINAL PAIN [None]
  - FATIGUE [None]
  - ABDOMINAL DISCOMFORT [None]
  - BLOOD CHROMOGRANIN A INCREASED [None]
  - BILIARY DILATATION [None]
  - HEPATIC PAIN [None]
  - BLOOD ALKALINE PHOSPHATASE INCREASED [None]
  - HYPOAESTHESIA [None]
  - SMALL INTESTINAL OBSTRUCTION [None]
  - DIVERTICULUM INTESTINAL [None]
  - PELVIC MASS [None]
  - 5-HYDROXYINDOLACETIC ACID INCREASED [None]
  - BACK PAIN [None]
  - ABDOMINAL MASS [None]
  - DIARRHOEA [None]
  - METASTASES TO LIVER [None]
  - HEPATIC LESION [None]
  - FLUSHING [None]
